FAERS Safety Report 11114859 (Version 2)
Quarter: 2015Q2

REPORT INFORMATION
  Report Type: Spontaneous
  Country: CL (occurrence: None)
  Receive Date: 20150513
  Receipt Date: 20150521
  Transmission Date: 20150821
  Serious: Yes (Hospitalization)
  Sender: FDA-Public Use
  Company Number: 2015SA053470

PATIENT
  Sex: Female
  Weight: 28 kg

DRUGS (1)
  1. CEREZYME [Suspect]
     Active Substance: IMIGLUCERASE
     Indication: GAUCHER^S DISEASE
     Dosage: 60 UNIT(S)/KILOGRAM BODYWEIGHT;EVERY OTHER WEEK;INTRAVENOUS (NOT OTHERWISE SPECIFIED)
     Route: 042
     Dates: start: 2006

REACTIONS (5)
  - Pyrexia [None]
  - Bronchitis [None]
  - Bone disorder [None]
  - Synovitis [None]
  - Asthenia [None]

NARRATIVE: CASE EVENT DATE: 20150423
